FAERS Safety Report 5285581-0 (Version None)
Quarter: 2007Q1

REPORT INFORMATION
  Report Type: 
  Country: None (occurrence: None)
  Receive Date: 20061229
  Receipt Date: 20060927
  Transmission Date: 20070707
  Serious: Yes (Other)
  Sender: FDA-Public Use
  Company Number: 2006UW18814

PATIENT
  Age: 72 Year
  Sex: Male

DRUGS (3)
  1. CRESTOR [Suspect]
     Dates: start: 20030101, end: 20060801
  2. ASPIRIN [Concomitant]
  3. INSULIN [Concomitant]

REACTIONS (1)
  - HEPATITIS CHOLESTATIC [None]
